FAERS Safety Report 12867201 (Version 1)
Quarter: 2016Q4

REPORT INFORMATION
  Report Type: Spontaneous
  Country: US (occurrence: US)
  Receive Date: 20161020
  Receipt Date: 20161020
  Transmission Date: 20170207
  Serious: No
  Sender: FDA-Public Use
  Company Number: US-JAZZ-2016-US-014628

PATIENT
  Age: 50 Year
  Sex: Male

DRUGS (14)
  1. ZOLMITRIPTAN. [Concomitant]
     Active Substance: ZOLMITRIPTAN
  2. AMITRIPTYLINE HCL [Concomitant]
     Active Substance: AMITRIPTYLINE
  3. GLYBURIDE. [Concomitant]
     Active Substance: GLYBURIDE
  4. VERAPAMIL [Concomitant]
     Active Substance: VERAPAMIL HYDROCHLORIDE
  5. FLUOXETINE HCL [Concomitant]
     Active Substance: FLUOXETINE HYDROCHLORIDE
  6. ASPIRIN. [Concomitant]
     Active Substance: ASPIRIN
  7. ATORVASTATIN [Concomitant]
     Active Substance: ATORVASTATIN
  8. XYREM [Suspect]
     Active Substance: SODIUM OXYBATE
     Indication: NARCOLEPSY
     Dosage: 2.25 G, BID
     Route: 048
     Dates: start: 201607
  9. GLIPIZIDE. [Concomitant]
     Active Substance: GLIPIZIDE
  10. SUMATRIPTAN. [Concomitant]
     Active Substance: SUMATRIPTAN
  11. TYLENOL EXTRA STRENGTH [Concomitant]
     Active Substance: ACETAMINOPHEN
  12. GABAPENTIN. [Concomitant]
     Active Substance: GABAPENTIN
  13. METFORMIN HCL [Concomitant]
     Active Substance: METFORMIN HYDROCHLORIDE
  14. TRIAMTERENE AND HYDROCHLOROTHIAZIDE [Concomitant]
     Active Substance: HYDROCHLOROTHIAZIDE\TRIAMTERENE

REACTIONS (2)
  - Arthralgia [Not Recovered/Not Resolved]
  - Product taste abnormal [Unknown]

NARRATIVE: CASE EVENT DATE: 2016
